FAERS Safety Report 4845889-7 (Version None)
Quarter: 2005Q4

REPORT INFORMATION
  Report Type: 
  Country: None (occurrence: None)
  Receive Date: 20051201
  Receipt Date: 20051118
  Transmission Date: 20060501
  Serious: Yes (Other)
  Sender: FDA-Public Use
  Company Number: GXKR2005JP02020

PATIENT
  Age: 75 Year
  Sex: Female
  Weight: 34 kg

DRUGS (9)
  1. RIMACTANE (RIFAMPICIN) CAPSULE [Suspect]
     Dosage: 300 MG, ORAL
     Route: 048
     Dates: start: 20050806, end: 20050929
  2. MEROPEN (MEROPENEM) [Suspect]
     Indication: PYREXIA
     Dosage: 0.5 G, UNK
     Dates: start: 20050908, end: 20050922
  3. ISONIAZID [Concomitant]
  4. ETHAMBUTOL HCL [Concomitant]
  5. PYDOXAL (PYRIDOXAL PHOSPHATE) [Concomitant]
  6. SODIUM BICARBONATE IN PLASTIC CONTAINER [Concomitant]
  7. ALOSENN (ACHILLEA, ACHILLEA MILLEFOLIUM, RUBIA ROTT TINCTURE, RUBIA TI [Concomitant]
  8. ESPO (EPOETIN ALFA) [Concomitant]
  9. PRIMAXIN [Concomitant]

REACTIONS (3)
  - INTERSTITIAL LUNG DISEASE [None]
  - OXYGEN SATURATION DECREASED [None]
  - WHITE BLOOD CELL COUNT DECREASED [None]
